FAERS Safety Report 5249912-X (Version None)
Quarter: 2007Q1

REPORT INFORMATION
  Report Type: 
  Country: None (occurrence: None)
  Receive Date: 20070228
  Receipt Date: 20060306
  Transmission Date: 20070707
  Serious: No
  Sender: FDA-Public Use
  Company Number: US-GLAXOSMITHKLINE-A0583317A

PATIENT
  Age: 18 Year
  Sex: Female

DRUGS (3)
  1. LAMICTAL [Suspect]
     Dosage: 100MG PER DAY
     Route: 048
  2. ZYPREXA [Concomitant]
  3. AMBIEN [Concomitant]

REACTIONS (9)
  - ABNORMAL DREAMS [None]
  - CHEST DISCOMFORT [None]
  - DIZZINESS [None]
  - DYSPNOEA [None]
  - HEADACHE [None]
  - HYPERACUSIS [None]
  - INSOMNIA [None]
  - PHOTOPHOBIA [None]
  - VISION BLURRED [None]
